FAERS Safety Report 7704396 (Version 7)
Quarter: 2014Q1

REPORT INFORMATION
  Report Type: Spontaneous
  Country: JP (occurrence: JP)
  Receive Date: 20101213
  Receipt Date: 20140321
  Transmission Date: 20141002
  Serious: Yes (Life-Threatening, Hospitalization)
  Sender: FDA-Public Use
  Company Number: PHHY2010JP82185

PATIENT
  Sex: 0

DRUGS (50)
  1. CLOZARIL (CLOZAPINE) [Suspect]
     Indication: SCHIZOPHRENIA, DISORGANISED TYPE
     Dosage: 12.5 MG, UNK
     Route: 048
     Dates: start: 20100204, end: 20100204
  2. CLOZARIL (CLOZAPINE) [Suspect]
     Dosage: 25 MG, UNK
     Route: 048
     Dates: start: 20100205, end: 20100207
  3. CLOZARIL (CLOZAPINE) [Suspect]
     Dosage: 50 MG, UNK
     Route: 048
     Dates: start: 20100208, end: 20100210
  4. CLOZARIL (CLOZAPINE) [Suspect]
     Dosage: 75 MG, UNK
     Route: 048
     Dates: start: 20100211, end: 20100212
  5. CLOZARIL (CLOZAPINE) [Suspect]
     Dosage: 100 MG, UNK
     Route: 048
     Dates: start: 20100213, end: 20100214
  6. CLOZARIL (CLOZAPINE) [Suspect]
     Dosage: 125 MG, UNK
     Route: 048
     Dates: start: 20100215, end: 20100216
  7. CLOZARIL (CLOZAPINE) [Suspect]
     Dosage: 150 MG, UNK
     Dates: start: 20100217, end: 20100220
  8. CLOZARIL (CLOZAPINE) [Suspect]
     Dosage: 175 MG, UNK
     Route: 048
     Dates: start: 20100221, end: 20100223
  9. CLOZARIL (CLOZAPINE) [Suspect]
     Dosage: 200 MG, UNK
     Route: 048
     Dates: start: 20100224, end: 20100228
  10. CLOZARIL (CLOZAPINE) [Suspect]
     Dosage: 300 MG, UNK
     Route: 048
     Dates: start: 20100301, end: 20100305
  11. CLOZARIL (CLOZAPINE) [Suspect]
     Dosage: 400 MG, UNK
     Route: 048
     Dates: start: 20100306, end: 20100310
  12. CLOZARIL (CLOZAPINE) [Suspect]
     Dosage: 500 MG, UNK
     Route: 048
     Dates: start: 20100311, end: 20100316
  13. CLOZARIL (CLOZAPINE) [Suspect]
     Dosage: 600 MG, UNK
     Route: 048
     Dates: start: 20100317, end: 20100406
  14. CLOZARIL (CLOZAPINE) [Suspect]
     Dosage: 500 MG, UNK
     Route: 048
     Dates: start: 20100407, end: 20100420
  15. CLOZARIL (CLOZAPINE) [Suspect]
     Dosage: 400 MG, UNK
     Route: 048
     Dates: start: 20100421, end: 20100426
  16. CLOZARIL (CLOZAPINE) [Suspect]
     Dosage: 600 MG, UNK
     Route: 048
     Dates: start: 20100427, end: 20101223
  17. CLOZARIL (CLOZAPINE) [Suspect]
     Dosage: 200 MG, UNK
     Route: 048
     Dates: start: 20101224, end: 20110216
  18. CLOZARIL (CLOZAPINE) [Suspect]
     Dosage: 300 MG, UNK
     Route: 048
     Dates: start: 20110217, end: 20110428
  19. CLOZARIL (CLOZAPINE) [Suspect]
     Dosage: 400 MG, UNK
     Route: 048
     Dates: start: 20110429, end: 20110609
  20. CLOZARIL (CLOZAPINE) [Suspect]
     Dosage: 300 MG, UNK
     Route: 048
     Dates: start: 20110610, end: 20110623
  21. CLOZARIL (CLOZAPINE) [Suspect]
     Dosage: 400 MG, UNK
     Route: 048
     Dates: start: 20110624, end: 20110929
  22. CLOZARIL (CLOZAPINE) [Suspect]
     Dosage: 300 MG, UNK
     Route: 048
     Dates: start: 20110930, end: 20111124
  23. CLOZARIL (CLOZAPINE) [Suspect]
     Dosage: 375 MG, UNK
     Route: 048
     Dates: start: 20111125
  24. LIMAS [Suspect]
     Indication: SCHIZOPHRENIA, DISORGANISED TYPE
     Dosage: 1000 MG, UNK
     Route: 048
     Dates: start: 20100204, end: 20101111
  25. LIMAS [Suspect]
     Dosage: 800 MG, UNK
     Route: 048
     Dates: start: 20100910, end: 20101007
  26. LIMAS [Suspect]
     Dosage: 600 MG, UNK
     Route: 048
     Dates: start: 20101008, end: 20101111
  27. LIMAS [Suspect]
     Dosage: 400 MG, UNK
     Route: 048
     Dates: start: 20101224, end: 20120519
  28. LIMAS [Suspect]
     Dosage: 200 MG, UNK
     Route: 048
     Dates: start: 20100910, end: 20110202
  29. LIMAS [Suspect]
     Dosage: 600 MG, UNK
     Route: 048
     Dates: start: 20110224, end: 20120519
  30. LIMAS [Suspect]
     Dosage: 800 MG, UNK
     Route: 048
     Dates: start: 20110520, end: 20110919
  31. LIMAS [Suspect]
     Dosage: 400 MG, UNK
     Route: 048
     Dates: start: 20110920, end: 20110926
  32. LIMAS [Suspect]
     Dosage: 300 MG, UNK
     Route: 048
     Dates: start: 20110929, end: 20110929
  33. LIMAS [Suspect]
     Dosage: 200 MG, UNK
     Route: 048
     Dates: start: 20110930, end: 20120204
  34. CERCINE [Suspect]
     Indication: SCHIZOPHRENIA, DISORGANISED TYPE
     Dosage: 15 MG, UNK
     Route: 048
     Dates: start: 20100805, end: 20110223
  35. CERCINE [Suspect]
     Dosage: 6 MG, UNK
     Route: 048
     Dates: start: 20110224, end: 20120311
  36. SENNOSIDE [Concomitant]
     Indication: CONSTIPATION
     Dosage: 72 MG
     Route: 048
     Dates: start: 20100204, end: 20100304
  37. SENNOSIDE [Concomitant]
     Dosage: 5 DF
     Route: 048
     Dates: start: 20100305
  38. SENNOSIDE [Concomitant]
     Dosage: 4 DF
     Route: 048
  39. AKINETON [Concomitant]
     Indication: PROPHYLAXIS
     Dosage: 03 MG
     Route: 048
     Dates: start: 20100204
  40. MAGNESIUM OXIDE [Concomitant]
     Indication: CONSTIPATION
     Dosage: 1500 MG
     Route: 048
     Dates: start: 20100204
  41. LAMICTAL [Concomitant]
     Indication: SCHIZOPHRENIA, DISORGANISED TYPE
     Dosage: 200 MG
     Route: 048
     Dates: start: 20100204
  42. LAMICTAL [Concomitant]
     Dosage: 100 MG
     Route: 048
  43. LAMICTAL [Concomitant]
     Dosage: 150 MG
     Dates: end: 20120204
  44. DEPAS [Concomitant]
     Indication: SCHIZOPHRENIA, DISORGANISED TYPE
     Dosage: 2 MG, UNK
     Route: 048
     Dates: start: 20100204, end: 20120204
  45. PANTOSIN [Concomitant]
     Indication: CONSTIPATION
     Dosage: 600 MG
     Dates: start: 20100204, end: 20100228
  46. CONTOMIN [Concomitant]
     Dosage: 1100 MG
     Route: 048
     Dates: start: 20100204
  47. CONTOMIN [Concomitant]
     Dosage: 900 MG
     Route: 048
  48. CONTOMIN [Concomitant]
     Dosage: 700 MG
     Route: 048
  49. CONTOMIN [Concomitant]
     Dosage: 350 MG
     Route: 048
     Dates: end: 20100303
  50. FLOMOX//CEFCAPENE PIVOXIL HYDROCHLORIDE [Concomitant]
     Indication: URINARY TRACT INFECTION
     Dosage: 300 MG
     Route: 048
     Dates: start: 20110716, end: 20110916

REACTIONS (7)
  - Suicide attempt [Recovered/Resolved]
  - Convulsion [Recovered/Resolved]
  - Road traffic accident [Unknown]
  - Compression fracture [Unknown]
  - Lumbar vertebral fracture [Unknown]
  - Bladder dysfunction [Recovered/Resolved]
  - Salivary hypersecretion [Unknown]
